FAERS Safety Report 18461265 (Version 1)
Quarter: 2020Q4

REPORT INFORMATION
  Report Type: Spontaneous
  Country: US (occurrence: US)
  Receive Date: 20201104
  Receipt Date: 20201104
  Transmission Date: 20210114
  Serious: No
  Sender: FDA-Public Use
  Company Number: US-SA-2020SA310019

PATIENT

DRUGS (2)
  1. DUPIXENT [Suspect]
     Active Substance: DUPILUMAB
     Indication: ASTHMA
     Dosage: 600 MG, 1X (DOSE WAS INJECTED IN TWO ARMS -300MG EACH)
  2. DUPIXENT [Suspect]
     Active Substance: DUPILUMAB
     Dosage: 300 MG

REACTIONS (2)
  - Paraesthesia [Unknown]
  - Off label use [Unknown]
